FAERS Safety Report 9613767 (Version 1)
Quarter: 2013Q4

REPORT INFORMATION
  Report Type: Spontaneous
  Country: AU (occurrence: AU)
  Receive Date: 20131010
  Receipt Date: 20131010
  Transmission Date: 20140711
  Serious: Yes (Other)
  Sender: FDA-Public Use
  Company Number: AU-GILEAD-2013-0085112

PATIENT
  Age: 0 Day
  Sex: Male

DRUGS (1)
  1. VIREAD [Suspect]
     Indication: HEPATITIS B
     Dosage: UNK
     Route: 064
     Dates: start: 20111220, end: 20120906

REACTIONS (1)
  - Foetal distress syndrome [Unknown]
